FAERS Safety Report 5028045-1 (Version None)
Quarter: 2006Q2

REPORT INFORMATION
  Report Type: 
  Country: None (occurrence: None)
  Receive Date: 20060612
  Receipt Date: 20060529
  Transmission Date: 20061013
  Serious: Yes (Disabling, Other)
  Sender: FDA-Public Use
  Company Number: NLWYE661730MAY06

PATIENT
  Age: 45 Year
  Sex: Male

DRUGS (1)
  1. IMIPRAMINE [Suspect]
     Indication: MAJOR DEPRESSION
     Dosage: 150 MG 2X PER 1 DAY
     Route: 048
     Dates: start: 20060406, end: 20060501

REACTIONS (3)
  - AKATHISIA [None]
  - DYSTONIA [None]
  - TREMOR [None]
